FAERS Safety Report 9005503 (Version 1)
Quarter: 2013Q1

REPORT INFORMATION
  Report Type: Spontaneous
  Country: US (occurrence: US)
  Receive Date: 20130109
  Receipt Date: 20130109
  Transmission Date: 20140127
  Serious: No
  Sender: FDA-Public Use
  Company Number: US-ASTRAZENECA-2012SE94452

PATIENT
  Sex: Male

DRUGS (5)
  1. METOPROLOL [Suspect]
     Route: 048
  2. CRESTOR [Suspect]
     Route: 048
  3. AMLODIPINE [Concomitant]
  4. ASPIRIN [Concomitant]
  5. JANUMENT [Concomitant]

REACTIONS (2)
  - High density lipoprotein decreased [Unknown]
  - Diabetes mellitus [Unknown]
